FAERS Safety Report 8185083-8 (Version None)
Quarter: 2012Q1

REPORT INFORMATION
  Report Type: 
  Country: None (occurrence: None)
  Receive Date: 20120301
  Receipt Date: 20120207
  Transmission Date: 20120608
  Serious: Yes (Other)
  Sender: FDA-Public Use
  Company Number: 2012-00167

PATIENT
  Age: 61 Year
  Sex: Female
  Weight: 86.1834 kg

DRUGS (1)
  1. LOSARTAN POTASSIUM/HYDROCHLOROTHIAZIDE [Suspect]
     Indication: HYPERTENSION
     Dosage: 50MG/12.5MG (1 IN 1 D), PER ORAL
     Route: 048
     Dates: start: 20110901, end: 20111228

REACTIONS (7)
  - URTICARIA [None]
  - ABDOMINAL PAIN [None]
  - DRUG INEFFECTIVE [None]
  - DIARRHOEA [None]
  - RECTAL HAEMORRHAGE [None]
  - PALPITATIONS [None]
  - RASH [None]
